FAERS Safety Report 6032574-1 (Version None)
Quarter: 2009Q1

REPORT INFORMATION
  Report Type: 
  Country: None (occurrence: None)
  Receive Date: 20090109
  Receipt Date: 20081209
  Transmission Date: 20090719
  Serious: Yes (Other)
  Sender: FDA-Public Use
  Company Number: BR-ROCHE-602286

PATIENT
  Sex: Male
  Weight: 61 kg

DRUGS (5)
  1. CLONAZEPAM [Suspect]
     Indication: ANXIETY
     Dosage: OTHER INDICATIONS: DEPRESSION AND NERVOUSNESS
     Route: 048
     Dates: start: 20030311, end: 20060101
  2. CLONAZEPAM [Suspect]
     Dosage: LOT NO. RJ0932; MANUFACTURED DATE:SEPTEMBER 2008; EXPIRY DATE:SEPTEMBER 2011
     Route: 048
     Dates: start: 20060101
  3. ALPRAZOLAM [Suspect]
     Indication: DRUG USE FOR UNKNOWN INDICATION
     Route: 065
  4. ABLOK [Concomitant]
     Indication: HYPERTENSION
  5. EXFORGE [Concomitant]
     Indication: HYPERTENSION

REACTIONS (8)
  - AGITATION [None]
  - ANXIETY [None]
  - CATARACT [None]
  - DRUG DEPENDENCE [None]
  - GASTRITIS [None]
  - PANIC ATTACK [None]
  - PHOBIA [None]
  - SEDATION [None]
